FAERS Safety Report 23502097 (Version 3)
Quarter: 2024Q1

REPORT INFORMATION
  Report Type: Spontaneous
  Country: GB (occurrence: GB)
  Receive Date: 20240208
  Receipt Date: 20240215
  Transmission Date: 20240409
  Serious: Yes (Other)
  Sender: FDA-Public Use
  Company Number: GB-AMERICAN REGENT INC-2024000404

PATIENT
  Sex: Female
  Weight: 41 kg

DRUGS (2)
  1. FERINJECT [Suspect]
     Active Substance: FERRIC CARBOXYMALTOSE
     Indication: Iron deficiency anaemia
     Dosage: 750 MILLIGRAM
     Dates: start: 20240122, end: 20240122
  2. UNSPECIFIED INGREDIENT [Concomitant]
     Active Substance: UNSPECIFIED INGREDIENT
     Indication: Product used for unknown indication
     Dosage: UNK (WAS ON LOAD OF VASODILATORS)
     Route: 065

REACTIONS (15)
  - Chromaturia [Unknown]
  - Liver injury [Unknown]
  - Cerebral vasoconstriction [Unknown]
  - Feeling cold [Unknown]
  - Vasoconstriction [Unknown]
  - Urine output decreased [Unknown]
  - Skin discolouration [Unknown]
  - Malaise [Unknown]
  - Retching [Unknown]
  - Fatigue [Unknown]
  - Headache [Unknown]
  - Chills [Unknown]
  - Hypotension [Unknown]
  - Diarrhoea [Unknown]
  - Liver function test increased [Unknown]

NARRATIVE: CASE EVENT DATE: 20240122
